FAERS Safety Report 7883594-3 (Version None)
Quarter: 2011Q4

REPORT INFORMATION
  Report Type: 
  Country: None (occurrence: None)
  Receive Date: 20111031
  Receipt Date: 20111018
  Transmission Date: 20120403
  Serious: Yes (Other)
  Sender: FDA-Public Use
  Company Number: FK201102416

PATIENT
  Age: 56 Year
  Sex: Male

DRUGS (2)
  1. PACLITAXEL [Suspect]
     Indication: THYMOMA MALIGNANT
     Dosage: 200 MG/M2
  2. CARBOPLATIN [Suspect]
     Indication: THYMOMA MALIGNANT
     Dosage: 6 AUC

REACTIONS (5)
  - NEUTROPENIA [None]
  - CONSTIPATION [None]
  - LEUKOPENIA [None]
  - ANAEMIA [None]
  - FATIGUE [None]
